FAERS Safety Report 24216436 (Version 1)
Quarter: 2024Q3

REPORT INFORMATION
  Report Type: Report from Study
  Country: MX (occurrence: None)
  Receive Date: 20240816
  Receipt Date: 20240816
  Transmission Date: 20241017
  Serious: Yes (Other)
  Sender: ASTRAZENECA
  Company Number: 2024A182339

PATIENT
  Age: 3961 Week
  Sex: Male
  Weight: 60 kg

DRUGS (2)
  1. DAPAGLIFLOZIN [Suspect]
     Active Substance: DAPAGLIFLOZIN
     Indication: Cardiac failure
     Route: 048
     Dates: start: 20230926
  2. ENTRESTO [Concomitant]
     Active Substance: SACUBITRIL\VALSARTAN
     Indication: Cardiac failure

REACTIONS (6)
  - Weight decreased [Recovering/Resolving]
  - Feeding disorder [Recovered/Resolved]
  - Asthenia [Recovered/Resolved]
  - Chest pain [Unknown]
  - Asthenia [Unknown]
  - Gait inability [Unknown]

NARRATIVE: CASE EVENT DATE: 20240201
